FAERS Safety Report 4488253-5 (Version None)
Quarter: 2004Q4

REPORT INFORMATION
  Report Type: 
  Country: None (occurrence: None)
  Receive Date: 20041021
  Receipt Date: 20041007
  Transmission Date: 20050328
  Serious: Yes (Hospitalization)
  Sender: FDA-Public Use
  Company Number: 2004UW21031

PATIENT
  Sex: Male

DRUGS (10)
  1. CRESTOR [Suspect]
     Dosage: 10 MG PO
     Route: 048
  2. AMBIEN [Concomitant]
  3. PLAVIX [Concomitant]
  4. TEGRETOL [Concomitant]
  5. SYNTHROID [Concomitant]
  6. PROCARDIA [Concomitant]
  7. LISINOPRIL AND HYDROCHLOROTHIAZIDE [Concomitant]
  8. K-DUR 10 [Concomitant]
  9. ATACAND [Concomitant]
  10. PRAZOSIN HCL [Concomitant]

REACTIONS (2)
  - RENAL FAILURE ACUTE [None]
  - RHABDOMYOLYSIS [None]
